FAERS Safety Report 10261725 (Version 2)
Quarter: 2014Q2

REPORT INFORMATION
  Report Type: Spontaneous
  Country: CA (occurrence: CA)
  Receive Date: 20140626
  Receipt Date: 20140626
  Transmission Date: 20141212
  Serious: Yes (Other)
  Sender: FDA-Public Use
  Company Number: CA-SA-RENA-1002170

PATIENT
  Age: 54 Year
  Sex: Female

DRUGS (13)
  1. RENAGEL [Suspect]
     Indication: HYPERPHOSPHATAEMIA
     Dosage: 4.8 G, QD
     Route: 048
     Dates: start: 20130816, end: 20130824
  2. PYRIDOXINE HYDROCHLORIDE [Concomitant]
     Dosage: UNK
  3. PREDNISONE [Concomitant]
     Dosage: 5 MG, QD
  4. AMLODIPINE [Concomitant]
     Dosage: 10 MG, QD
  5. PRAVASTATIN [Concomitant]
     Dosage: 40 MG, QD
  6. LEVOTHYROXINE [Concomitant]
     Dosage: 0.1 MG, QD
  7. RABEPRAZOLE [Concomitant]
     Dosage: 20 MG, QD
  8. POTASSIUM CHLORIDE [Concomitant]
     Dosage: 8 MEQ, QD
  9. FERROUS FUMARATE [Concomitant]
     Dosage: 300 MG, QD
     Route: 065
  10. DARBEPOETIN ALFA [Concomitant]
     Dosage: 40 MCG, (EVERY 2 WEEKS)
     Route: 059
  11. PLANTAGO AFRA [Concomitant]
     Dosage: 3 DF, QD
  12. BISOPROLOL FUMARATE [Concomitant]
     Dosage: 2.5 MG, QD
  13. ZOPICLONE [Concomitant]
     Dosage: 7.5 MG (AS NEEDED)

REACTIONS (6)
  - Pancreatitis [Recovered/Resolved]
  - Lipase increased [Not Recovered/Not Resolved]
  - Amylase increased [Recovered/Resolved]
  - Vomiting [Unknown]
  - Decreased appetite [Unknown]
  - Internal hernia [Unknown]
